FAERS Safety Report 10005234 (Version 1)
Quarter: 2014Q1

REPORT INFORMATION
  Report Type: Spontaneous
  Country: US (occurrence: US)
  Receive Date: 20140312
  Receipt Date: 20140312
  Transmission Date: 20141002
  Serious: No
  Sender: FDA-Public Use
  Company Number: US-009507513-1403USA001313

PATIENT
  Age: 84 Year
  Sex: Male

DRUGS (1)
  1. DULERA [Suspect]
     Indication: TRAUMATIC LUNG INJURY
     Dosage: ONE PUFF TWICE DAILY
     Route: 055

REACTIONS (1)
  - Nasopharyngitis [Recovering/Resolving]
